FAERS Safety Report 12809144 (Version 1)
Quarter: 2016Q4

REPORT INFORMATION
  Report Type: Spontaneous
  Country: US (occurrence: US)
  Receive Date: 20161004
  Receipt Date: 20161004
  Transmission Date: 20170207
  Serious: No
  Sender: FDA-Public Use
  Company Number: US-BIOMARINAP-US-2016-111252

PATIENT
  Age: 54 Year
  Sex: Female
  Weight: 116 kg

DRUGS (1)
  1. KUVAN [Suspect]
     Active Substance: SAPROPTERIN DIHYDROCHLORIDE
     Indication: PHENYLKETONURIA
     Dosage: 2400 MG, QD
     Route: 048
     Dates: start: 201512

REACTIONS (1)
  - Back injury [Recovered/Resolved]

NARRATIVE: CASE EVENT DATE: 20160701
